FAERS Safety Report 11583343 (Version 1)
Quarter: 2015Q4

REPORT INFORMATION
  Report Type: Spontaneous
  Country: IN (occurrence: IN)
  Receive Date: 20151001
  Receipt Date: 20151001
  Transmission Date: 20160304
  Serious: Yes (Other)
  Sender: FDA-Public Use
  Company Number: IN-ACCORD-033973

PATIENT
  Age: 42 Year
  Sex: Male

DRUGS (3)
  1. GEMCITABINE/GEMCITABINE HYDROCHLORIDE [Suspect]
     Active Substance: GEMCITABINE\GEMCITABINE HYDROCHLORIDE
     Indication: BLADDER ADENOCARCINOMA STAGE UNSPECIFIED
     Dosage: 4 CYCLES
  2. CISPLATIN. [Suspect]
     Active Substance: CISPLATIN
     Indication: BLADDER ADENOCARCINOMA STAGE UNSPECIFIED
     Dosage: 4 CYCLES
  3. DOCETAXEL. [Suspect]
     Active Substance: DOCETAXEL
     Indication: BLADDER ADENOCARCINOMA STAGE UNSPECIFIED
     Dosage: 2 CYCLES

REACTIONS (3)
  - Condition aggravated [Not Recovered/Not Resolved]
  - Drug ineffective [Not Recovered/Not Resolved]
  - General physical health deterioration [None]
